FAERS Safety Report 9886895 (Version 1)
Quarter: 2014Q1

REPORT INFORMATION
  Report Type: Spontaneous
  Country: NL (occurrence: NL)
  Receive Date: 20140210
  Receipt Date: 20140210
  Transmission Date: 20141002
  Serious: Yes (Hospitalization)
  Sender: FDA-Public Use
  Company Number: NL-009507513-1402NLD003028

PATIENT
  Age: 36 Year
  Sex: Male
  Weight: 69 kg

DRUGS (2)
  1. MIRTAZAPINE [Suspect]
     Indication: TENSION
     Dosage: 1 TIMES PER 1 DAYS 45 MG
     Route: 048
     Dates: start: 201307, end: 201309
  2. LORAZEPAM [Concomitant]
     Dosage: 1TIMES PER 1 DAYS 1 DF
     Dates: start: 201307, end: 201311

REACTIONS (1)
  - Psychotic disorder [Recovering/Resolving]
